FAERS Safety Report 19976571 (Version 8)
Quarter: 2022Q3

REPORT INFORMATION
  Report Type: Report from Study
  Country: JP (occurrence: JP)
  Receive Date: 20211020
  Receipt Date: 20220830
  Transmission Date: 20221027
  Serious: Yes (Hospitalization)
  Sender: FDA-Public Use
  Company Number: JP-NOVARTISPH-NVSC2021JP098212

PATIENT
  Age: 49 Year
  Sex: Male
  Weight: 70 kg

DRUGS (4)
  1. GILENYA [Suspect]
     Active Substance: FINGOLIMOD HYDROCHLORIDE
     Indication: Product used for unknown indication
     Dosage: 0.5 MG, QD
     Route: 048
     Dates: start: 20200319, end: 20211007
  2. URSO [Suspect]
     Active Substance: URSODIOL
     Indication: Hepatic steatosis
     Dosage: 50 MG
     Route: 048
     Dates: start: 20211010
  3. DEPAS [Concomitant]
     Indication: Dizziness
     Dosage: 0.5 MG, QD
     Route: 048
     Dates: start: 20170515
  4. METHYLCOBALAMIN [Concomitant]
     Active Substance: METHYLCOBALAMIN
     Indication: Visual acuity reduced
     Dosage: 500 UG, TID
     Route: 048

REACTIONS (4)
  - Abdominal pain [Recovered/Resolved]
  - Hepatic steatosis [Recovering/Resolving]
  - Skin papilloma [Recovered/Resolved]
  - Nasopharyngitis [Recovered/Resolved]

NARRATIVE: CASE EVENT DATE: 20200918
